FAERS Safety Report 5655839-1 (Version None)
Quarter: 2008Q1

REPORT INFORMATION
  Report Type: 
  Country: None (occurrence: None)
  Receive Date: 20080307
  Receipt Date: 20080229
  Transmission Date: 20080703
  Serious: Yes (Hospitalization, Other)
  Sender: FDA-Public Use
  Company Number: US-GILEAD-2008-0015539

PATIENT
  Sex: Female

DRUGS (9)
  1. LETAIRIS [Suspect]
     Indication: PULMONARY HYPERTENSION
     Route: 048
     Dates: start: 20080202
  2. LASIX [Concomitant]
     Route: 048
  3. VERAPAMIL [Concomitant]
     Route: 048
  4. ALBUTEROL [Concomitant]
     Route: 055
  5. ADVAIR DISKUS 100/50 [Concomitant]
     Route: 055
  6. SPIRIVA [Concomitant]
     Route: 055
  7. NASONEX [Concomitant]
     Route: 055
  8. MUCINEX [Concomitant]
     Route: 048
  9. TESSALON [Concomitant]
     Route: 048

REACTIONS (1)
  - PNEUMONIA [None]
